FAERS Safety Report 5123063-7 (Version None)
Quarter: 2006Q4

REPORT INFORMATION
  Report Type: 
  Country: None (occurrence: None)
  Receive Date: 20061004
  Receipt Date: 20061004
  Transmission Date: 20070319
  Serious: Yes (Other)
  Sender: FDA-Public Use
  Company Number: None

PATIENT
  Age: 77 Year
  Sex: Female
  Weight: 76.5 kg

DRUGS (1)
  1. SODIUM THIOSULFATE [Suspect]
     Indication: CALCIPHYLAXIS
     Dosage: 25 GRAMS DAILY IV
     Route: 042
     Dates: start: 20060714, end: 20060717

REACTIONS (2)
  - TREMOR [None]
  - VISUAL DISTURBANCE [None]
